FAERS Safety Report 6118020-8 (Version None)
Quarter: 2009Q1

REPORT INFORMATION
  Report Type: 
  Country: None (occurrence: None)
  Receive Date: 20090314
  Receipt Date: 20090204
  Transmission Date: 20090719
  Serious: No
  Sender: FDA-Public Use
  Company Number: US-ABBOTT-09P-163-0501974-00

PATIENT
  Sex: Female

DRUGS (3)
  1. HUMIRA [Suspect]
     Indication: RHEUMATOID ARTHRITIS
     Dates: start: 20070101
  2. HUMIRA [Suspect]
     Dates: start: 20070101
  3. HUMIRA [Suspect]
     Dates: start: 20090104

REACTIONS (12)
  - ABDOMINAL PAIN UPPER [None]
  - DIARRHOEA [None]
  - HEADACHE [None]
  - HYPERSENSITIVITY [None]
  - HYPOPHAGIA [None]
  - MALAISE [None]
  - MOBILITY DECREASED [None]
  - MUSCLE SPASMS [None]
  - NASOPHARYNGITIS [None]
  - NECK PAIN [None]
  - PRESYNCOPE [None]
  - URTICARIA [None]
